FAERS Safety Report 7957646-3 (Version None)
Quarter: 2011Q4

REPORT INFORMATION
  Report Type: 
  Country: None (occurrence: None)
  Receive Date: 20111205
  Receipt Date: 20111128
  Transmission Date: 20120403
  Serious: Yes (Hospitalization)
  Sender: FDA-Public Use
  Company Number: PHHY2011DE097394

PATIENT
  Sex: Female

DRUGS (2)
  1. GILENYA [Suspect]
     Indication: MULTIPLE SCLEROSIS
     Dosage: 0.5 MG, QD
     Route: 048
     Dates: start: 20110525, end: 20111024
  2. TOLPERISONE [Concomitant]
     Indication: MUSCLE SPASTICITY
     Dosage: 50 MG, TID
     Route: 048
     Dates: start: 20060101

REACTIONS (2)
  - ACUTE PSYCHOSIS [None]
  - PERSONALITY CHANGE [None]
